FAERS Safety Report 4708600-6 (Version None)
Quarter: 2005Q3

REPORT INFORMATION
  Report Type: 
  Country: None (occurrence: None)
  Receive Date: 20050706
  Receipt Date: 20050616
  Transmission Date: 20060218
  Serious: Yes (Death)
  Sender: FDA-Public Use
  Company Number: FRWYE749916JUN05

PATIENT
  Age: 93 Year
  Sex: Female

DRUGS (4)
  1. BISOPROLOL FUMARATE [Suspect]
     Indication: HYPERTENSION
     Dosage: 10 MG 1X PER 1 DAY ORAL
     Route: 048
     Dates: end: 20040727
  2. FLEET PHOSPHO-SODA (SODIUM PHOSPHATE DIBASIC/SODIUM PHOSPHATE MONOBASI [Suspect]
     Indication: COLONOSCOPY
     Dosage: ORAL
     Route: 048
     Dates: start: 20040726, end: 20040727
  3. FORLAX (MACROGOL, , 0) [Suspect]
     Dosage: 2 DOSE 1X PER 1 DAY ORAL
     Route: 048
     Dates: end: 20040727
  4. ZOCOR [Suspect]
     Dosage: 20 MG 1X PER 1 DAY ORAL
     Route: 048
     Dates: start: 20040310, end: 20040727

REACTIONS (9)
  - ACUTE MYOCARDIAL INFARCTION [None]
  - CARDIO-RESPIRATORY ARREST [None]
  - CARDIOGENIC SHOCK [None]
  - DEHYDRATION [None]
  - DIARRHOEA [None]
  - HYPERNATRAEMIA [None]
  - HYPOKALAEMIA [None]
  - THROMBOSIS IN DEVICE [None]
  - VENTRICULAR ARRHYTHMIA [None]
